FAERS Safety Report 9253430 (Version 3)
Quarter: 2013Q3

REPORT INFORMATION
  Report Type: Spontaneous
  Country: US (occurrence: US)
  Receive Date: 20130425
  Receipt Date: 20130816
  Transmission Date: 20140515
  Serious: Yes (Hospitalization)
  Sender: FDA-Public Use
  Company Number: US-BIOGENIDEC-2013BI036456

PATIENT
  Age: 68 Year
  Sex: Male

DRUGS (11)
  1. TYSABRI [Suspect]
     Indication: MULTIPLE SCLEROSIS
     Route: 042
     Dates: start: 20040701, end: 20060701
  2. TYSABRI [Suspect]
     Indication: MULTIPLE SCLEROSIS
     Route: 042
     Dates: start: 20061011, end: 20081124
  3. TYSABRI [Suspect]
     Indication: MULTIPLE SCLEROSIS
     Route: 042
     Dates: start: 20110411, end: 20130218
  4. DIOVAN [Concomitant]
  5. LYRICA [Concomitant]
  6. METFORMIN [Concomitant]
  7. XANAX [Concomitant]
  8. REQUIP [Concomitant]
  9. CYMBALTA [Concomitant]
  10. TEMAZEPAM [Concomitant]
  11. DULOXETINE [Concomitant]

REACTIONS (4)
  - Acute myocardial infarction [Recovered/Resolved]
  - Arthralgia [Unknown]
  - Fatigue [Unknown]
  - Malaise [Unknown]
